FAERS Safety Report 6727693-8 (Version None)
Quarter: 2010Q2

REPORT INFORMATION
  Report Type: 
  Country: None (occurrence: None)
  Receive Date: 20100514
  Receipt Date: 20100514
  Transmission Date: 20101027
  Serious: No
  Sender: FDA-Public Use
  Company Number: None

PATIENT
  Age: 74 Year
  Sex: Male
  Weight: 60.782 kg

DRUGS (4)
  1. SODIUM POLYSTYRENE SULFONATE 15 G/60 ML NDC 00054-0165-63 [Suspect]
     Indication: HYPERKALAEMIA
     Dosage: 4 TBLESPPONSFUL DAILY PO
     Route: 048
     Dates: start: 20081021, end: 20081022
  2. KIONEX [Suspect]
     Indication: HYPERKALAEMIA
     Dosage: 2 TABLESPOONFUL BID PO
     Route: 048
     Dates: start: 20091202, end: 20091203
  3. AMLODIPINE [Concomitant]
  4. SIMVASTATIN [Concomitant]

REACTIONS (3)
  - FEELING HOT [None]
  - PRURITUS [None]
  - RASH [None]
